FAERS Safety Report 24116227 (Version 1)
Quarter: 2024Q3

REPORT INFORMATION
  Report Type: Spontaneous
  Country: JP (occurrence: JP)
  Receive Date: 20240722
  Receipt Date: 20240722
  Transmission Date: 20241016
  Serious: Yes (Other)
  Sender: OXFORD PHARMACEUTICALS
  Company Number: JP-Oxford Pharmaceuticals, LLC-2159408

PATIENT
  Age: 25 Year
  Sex: Male

DRUGS (1)
  1. METHYLPHENIDATE HYDROCHLORIDE [Suspect]
     Active Substance: METHYLPHENIDATE HYDROCHLORIDE
     Indication: Attention deficit hyperactivity disorder

REACTIONS (1)
  - Blood creatine phosphokinase increased [Recovering/Resolving]
